FAERS Safety Report 15149413 (Version 1)
Quarter: 2018Q3

REPORT INFORMATION
  Report Type: Spontaneous
  Country: US (occurrence: US)
  Receive Date: 20180619
  Receipt Date: 20180619
  Transmission Date: 20181010
  Serious: Yes (Life-Threatening, Hospitalization)
  Sender: FDA-Public Use
  Company Number: None

PATIENT
  Age: 63 Year
  Sex: Male
  Weight: 75.98 kg

DRUGS (2)
  1. LISINOPRIL. [Suspect]
     Active Substance: LISINOPRIL
     Indication: HYPERTENSION
     Route: 048
     Dates: start: 20180330, end: 20180613
  2. LINEZOLID. [Suspect]
     Active Substance: LINEZOLID
     Indication: PROSTATIC ABSCESS
     Route: 048
     Dates: start: 20180522, end: 20180608

REACTIONS (3)
  - Dysphagia [None]
  - Condition aggravated [None]
  - Swollen tongue [None]

NARRATIVE: CASE EVENT DATE: 20180608
